FAERS Safety Report 5947080-X (Version None)
Quarter: 2008Q4

REPORT INFORMATION
  Report Type: 
  Country: None (occurrence: None)
  Receive Date: 20081110
  Receipt Date: 20081030
  Transmission Date: 20090506
  Serious: Yes (Hospitalization)
  Sender: FDA-Public Use
  Company Number: JP-ASTRAZENECA-2008SE05129

PATIENT
  Age: 56 Year
  Sex: Male
  Weight: 79 kg

DRUGS (4)
  1. BLOPRESS [Suspect]
     Indication: CARDIAC FAILURE CHRONIC
     Route: 048
     Dates: start: 20070426
  2. WARFARIN SODIUM [Concomitant]
     Indication: ATRIAL FIBRILLATION
     Route: 048
     Dates: start: 20030612
  3. BEPRICOR [Concomitant]
     Indication: ATRIAL FIBRILLATION
     Route: 048
     Dates: start: 20050401, end: 20071113
  4. ARTIST [Concomitant]
     Indication: CARDIAC FAILURE CHRONIC
     Route: 048
     Dates: start: 20080510

REACTIONS (2)
  - CARDIAC FAILURE [None]
  - JAW FRACTURE [None]
